FAERS Safety Report 10080592 (Version 1)
Quarter: 2014Q2

REPORT INFORMATION
  Report Type: Report from Study
  Country: US (occurrence: US)
  Receive Date: 20140416
  Receipt Date: 20140416
  Transmission Date: 20141212
  Serious: Yes (Other)
  Sender: FDA-Public Use
  Company Number: US-BAYER-2014-054737

PATIENT
  Sex: Male

DRUGS (1)
  1. XOFIGO [Suspect]
     Indication: PROSTATE CANCER
     Dosage: UNK
     Dates: start: 201310, end: 2014

REACTIONS (1)
  - Gastrointestinal haemorrhage [None]
